FAERS Safety Report 8217400-4 (Version None)
Quarter: 2012Q1

REPORT INFORMATION
  Report Type: 
  Country: None (occurrence: None)
  Receive Date: 20120229
  Receipt Date: 20110608
  Transmission Date: 20120608
  Serious: Yes (Death, Hospitalization)
  Sender: FDA-Public Use
  Company Number: PHHY2011US50828

PATIENT
  Age: 61 Year
  Sex: Male
  Weight: 56 kg

DRUGS (7)
  1. NEORAL [Suspect]
     Indication: LUNG TRANSPLANT
  2. NEORAL [Suspect]
     Indication: PROPHYLAXIS AGAINST TRANSPLANT REJECTION
  3. PREDNISONE [Concomitant]
  4. TACROLIMUS [Concomitant]
  5. METHYLPREDNISOLONE [Concomitant]
  6. AZATHIOPRINE [Concomitant]
  7. MYCOPENOLATE MOFETIL [Concomitant]

REACTIONS (5)
  - HEMIPLEGIA [None]
  - DYSPHAGIA [None]
  - PROGRESSIVE MULTIFOCAL LEUKOENCEPHALOPATHY [None]
  - BLINDNESS UNILATERAL [None]
  - SPEECH DISORDER [None]
